FAERS Safety Report 9724732 (Version 2)
Quarter: 2013Q4

REPORT INFORMATION
  Report Type: Spontaneous
  Country: JP (occurrence: JP)
  Receive Date: 20131202
  Receipt Date: 20131209
  Transmission Date: 20140711
  Serious: Yes (Hospitalization)
  Sender: FDA-Public Use
  Company Number: JP-PFIZER INC-2013336476

PATIENT
  Sex: 0

DRUGS (1)
  1. AZULFIDINE EN [Suspect]
     Dosage: UNK
     Route: 048

REACTIONS (1)
  - Vitamin B1 decreased [Unknown]
